FAERS Safety Report 7419976-3 (Version None)
Quarter: 2011Q2

REPORT INFORMATION
  Report Type: 
  Country: None (occurrence: None)
  Receive Date: 20110413
  Receipt Date: 20110413
  Transmission Date: 20111010
  Serious: No
  Sender: FDA-Public Use
  Company Number: None

PATIENT
  Age: 76 Year
  Sex: Male
  Weight: 81.8 kg

DRUGS (3)
  1. ROZEREM [Suspect]
     Indication: INSOMNIA
     Dosage: ONE TABLET AT NIGHT BEFORE BEDTIME
     Dates: start: 20110319
  2. ROZEREM [Suspect]
     Indication: INSOMNIA
     Dosage: ONE TABLET AT NIGHT BEFORE BEDTIME
     Dates: start: 20110317
  3. ROZEREM [Suspect]
     Indication: INSOMNIA
     Dosage: ONE TABLET AT NIGHT BEFORE BEDTIME
     Dates: start: 20110318

REACTIONS (1)
  - INSOMNIA [None]
